FAERS Safety Report 19043436 (Version 3)
Quarter: 2021Q4

REPORT INFORMATION
  Report Type: Report from Study
  Country: US (occurrence: US)
  Receive Date: 20210322
  Receipt Date: 20211022
  Transmission Date: 20220303
  Serious: Yes (Hospitalization, Other)
  Sender: FDA-Public Use
  Company Number: NVSC2021US056254

PATIENT
  Sex: Female

DRUGS (2)
  1. ENTRESTO [Suspect]
     Active Substance: SACUBITRIL\VALSARTAN
     Indication: Product used for unknown indication
     Dosage: UNK UNK, BID
     Route: 048
  2. ENTRESTO [Suspect]
     Active Substance: SACUBITRIL\VALSARTAN
     Dosage: UNK
     Route: 048

REACTIONS (8)
  - Pneumonia [Unknown]
  - Cerebrovascular accident [Unknown]
  - Malaise [Unknown]
  - Hypoaesthesia [Unknown]
  - Back disorder [Unknown]
  - Contusion [Unknown]
  - Blood blister [Unknown]
  - Hypotension [Unknown]
